FAERS Safety Report 12816820 (Version 2)
Quarter: 2017Q3

REPORT INFORMATION
  Report Type: Spontaneous
  Country: US (occurrence: US)
  Receive Date: 20161006
  Receipt Date: 20170929
  Transmission Date: 20171127
  Serious: No
  Sender: FDA-Public Use
  Company Number: US-NOVEN PHARMACEUTICALS, INC.-US2015000886

PATIENT

DRUGS (8)
  1. COMBIPATCH [Suspect]
     Active Substance: ESTRADIOL\NORETHINDRONE ACETATE
     Indication: BLADDER SPASM
     Dosage: 0.05/0.14MG, UNKNOWN
     Route: 062
  2. COMBIPATCH [Suspect]
     Active Substance: ESTRADIOL\NORETHINDRONE ACETATE
     Dosage: ONE PATCH FOR 1 MONTH
     Route: 062
  3. COMBIPATCH [Suspect]
     Active Substance: ESTRADIOL\NORETHINDRONE ACETATE
     Indication: HORMONE REPLACEMENT THERAPY
     Dosage: 0.05/0.14 MG, UNKNOWN
     Route: 062
     Dates: start: 2005
  4. VITAMIN D [Concomitant]
     Active Substance: CHOLECALCIFEROL
     Dosage: 2000 IU, UNK
  5. COMBIPATCH [Suspect]
     Active Substance: ESTRADIOL\NORETHINDRONE ACETATE
     Indication: HOT FLUSH
     Dosage: ONE PATCH, 1/WEEK
     Route: 062
  6. PROBIOTIC [Concomitant]
     Active Substance: PROBIOTICS NOS
     Dosage: UNK, QD
  7. COMBIPATCH [Suspect]
     Active Substance: ESTRADIOL\NORETHINDRONE ACETATE
     Dosage: ONE PATCH FOR 3 WEEKS
     Route: 062
  8. COMBIPATCH [Suspect]
     Active Substance: ESTRADIOL\NORETHINDRONE ACETATE
     Dosage: ONE PATCH FOR 2 WEEKS
     Route: 062

REACTIONS (13)
  - Breast disorder [Unknown]
  - Bladder pain [Recovered/Resolved]
  - Hyperhidrosis [Unknown]
  - Off label use [Unknown]
  - Condition aggravated [Recovered/Resolved]
  - Nausea [Unknown]
  - Cystitis [Recovered/Resolved]
  - Abdominal distension [Recovered/Resolved]
  - Feeling cold [Unknown]
  - Insomnia [Unknown]
  - Inappropriate schedule of drug administration [Recovered/Resolved]
  - Pollakiuria [Recovering/Resolving]
  - Hot flush [Unknown]

NARRATIVE: CASE EVENT DATE: 2005
